FAERS Safety Report 5130143-9 (Version None)
Quarter: 2006Q4

REPORT INFORMATION
  Report Type: 
  Country: None (occurrence: None)
  Receive Date: 20061013
  Receipt Date: 20061004
  Transmission Date: 20070319
  Serious: Yes (Death, Hospitalization)
  Sender: FDA-Public Use
  Company Number: CERZ-11220

PATIENT
  Age: 62 Year
  Sex: Male
  Weight: 95 kg

DRUGS (1)
  1. CEREZYME [Suspect]
     Indication: GAUCHER'S DISEASE
     Dosage: 60 U/KG Q2WKS IV
     Route: 042
     Dates: start: 19970922, end: 20060601

REACTIONS (6)
  - DRUG DOSE OMISSION [None]
  - HEADACHE [None]
  - HEPATIC CANCER METASTATIC [None]
  - HEPATIC NEOPLASM MALIGNANT [None]
  - METASTASES TO CENTRAL NERVOUS SYSTEM [None]
  - METASTASES TO LIVER [None]
